FAERS Safety Report 8035823-3 (Version None)
Quarter: 2012Q1

REPORT INFORMATION
  Report Type: 
  Country: None (occurrence: None)
  Receive Date: 20120105
  Receipt Date: 20111227
  Transmission Date: 20120608
  Serious: Yes (Hospitalization)
  Sender: FDA-Public Use
  Company Number: 7100450

PATIENT
  Age: 38 Year
  Sex: Female

DRUGS (2)
  1. LEVOTHYROXINE SODIUM [Suspect]
     Indication: AUTOIMMUNE THYROIDITIS
     Dosage: 25 MCG (DAILY)
     Route: 048
     Dates: start: 20111124, end: 20111128
  2. LEVOTHYROXINE SODIUM [Suspect]
     Indication: HYPOTHYROIDISM
     Dosage: 25 MCG (DAILY)
     Route: 048
     Dates: start: 20111124, end: 20111128

REACTIONS (4)
  - URTICARIA [None]
  - HYPERSENSITIVITY [None]
  - DYSPEPSIA [None]
  - PRURITUS [None]
